FAERS Safety Report 11243554 (Version 1)
Quarter: 2015Q3

REPORT INFORMATION
  Report Type: Spontaneous
  Country: US (occurrence: None)
  Receive Date: 20150702
  Receipt Date: 20150702
  Transmission Date: 20151125
  Serious: Yes (Hospitalization, Disabling, Other)
  Sender: FDA-Public Use
  Company Number: None

PATIENT
  Age: 46 Year
  Sex: Female
  Weight: 52.16 kg

DRUGS (7)
  1. TYLENOL [Concomitant]
     Active Substance: ACETAMINOPHEN
  2. LUPRON [Suspect]
     Active Substance: LEUPROLIDE ACETATE
     Indication: ENDOMETRIOSIS
     Dosage: CAN^T RECALL ITS ON YOUR FILE
     Route: 030
     Dates: start: 201010, end: 201011
  3. SYNTHROID [Concomitant]
     Active Substance: LEVOTHYROXINE SODIUM
  4. VITAMIN C [Concomitant]
     Active Substance: ASCORBIC ACID
  5. VIT B [Concomitant]
     Active Substance: VITAMINS
  6. TUMERIC [Concomitant]
  7. VITAMIN D [Concomitant]
     Active Substance: CHOLECALCIFEROL

REACTIONS (16)
  - Hot flush [None]
  - Cardiac disorder [None]
  - Weight increased [None]
  - Amnesia [None]
  - Anhedonia [None]
  - Immune system disorder [None]
  - Arthralgia [None]
  - Sleep disorder [None]
  - Suicidal ideation [None]
  - Migraine [None]
  - Haemorrhage [None]
  - Hysterectomy [None]
  - Blood cholesterol increased [None]
  - Intraocular pressure increased [None]
  - Impaired work ability [None]
  - Visual impairment [None]
